FAERS Safety Report 21816346 (Version 1)
Quarter: 2023Q1

REPORT INFORMATION
  Report Type: Spontaneous
  Country: US (occurrence: None)
  Receive Date: 20230103
  Receipt Date: 20230103
  Transmission Date: 20230417
  Serious: No
  Sender: FDA-Public Use
  Company Number: None

PATIENT
  Age: 46 Year
  Sex: Female

DRUGS (1)
  1. ALKA-SELTZER ORIGINAL FLAVOR [Suspect]
     Active Substance: ASPIRIN

REACTIONS (6)
  - Product outer packaging issue [None]
  - Product formulation issue [None]
  - Wrong product stored [None]
  - Product label on wrong product [None]
  - Wrong product administered [None]
  - Product packaging confusion [None]

NARRATIVE: CASE EVENT DATE: 20230101
